FAERS Safety Report 7058925-7 (Version None)
Quarter: 2010Q4

REPORT INFORMATION
  Report Type: 
  Country: None (occurrence: None)
  Receive Date: 20101024
  Receipt Date: 20101011
  Transmission Date: 20110411
  Serious: Yes (Hospitalization)
  Sender: FDA-Public Use
  Company Number: US-ELI_LILLY_AND_COMPANY-US201008002492

PATIENT
  Sex: Female
  Weight: 104 kg

DRUGS (21)
  1. FORTEO [Suspect]
     Indication: OSTEOPOROSIS
     Dosage: 20 UG, DAILY (1/D)
     Route: 058
  2. ACIPHEX [Concomitant]
     Dosage: 20 MG, 2/D
  3. ALBUTEROL [Concomitant]
     Dosage: UNK, AS NEEDED
     Route: 055
  4. ARAVA [Concomitant]
     Dosage: 20 MG, DAILY (1/D)
     Route: 048
  5. CALCIUM [Concomitant]
  6. COLCHICINE [Concomitant]
     Dosage: 0.6 MG, 2/D
     Route: 048
  7. CYMBALTA [Concomitant]
     Dosage: 60 MG, DAILY (1/D)
  8. FERROUS SULFATE [Concomitant]
     Dosage: 28 MG, 2/D
     Route: 048
  9. FLEXERIL [Concomitant]
     Dosage: 10 MG, DAILY (1/D)
     Route: 048
  10. LASIX [Concomitant]
     Dosage: 10 MG, DAILY (1/D)
  11. LISINOPRIL [Concomitant]
     Dosage: 10 MG, DAILY (1/D)
  12. LODINE [Concomitant]
     Dosage: 500 MG, 2/D
     Route: 048
  13. LYRICA [Concomitant]
     Dosage: 75 MG, EACH MORNING
     Route: 048
  14. LYRICA [Concomitant]
     Dosage: 150 MG, EACH EVENING
  15. NORTRIPTYLINE HCL [Concomitant]
     Dosage: 100 MG, DAILY (1/D)
  16. OXYGEN [Concomitant]
     Dosage: UNK, DAILY (1/D)
  17. PLAQUENIL [Concomitant]
     Dosage: 200 MG, 2/D
     Route: 048
  18. POTASSIUM [Concomitant]
     Dosage: 10 MEQ, DAILY (1/D)
  19. PRINIVIL [Concomitant]
     Dosage: UNK, DAILY (1/D)
  20. TYLENOL (CAPLET) [Concomitant]
     Dosage: 500 MG, AS NEEDED
  21. VITAMIN D [Concomitant]
     Dosage: 50000 U, WEEKLY (1/W)
     Route: 048

REACTIONS (1)
  - BACK PAIN [None]
